FAERS Safety Report 6218152-X (Version None)
Quarter: 2009Q2

REPORT INFORMATION
  Report Type: 
  Country: None (occurrence: None)
  Receive Date: 20090608
  Receipt Date: 20090604
  Transmission Date: 20091009
  Serious: Yes (Death)
  Sender: FDA-Public Use
  Company Number: PHHY2009FR19195

PATIENT
  Sex: Female
  Weight: 89 kg

DRUGS (12)
  1. ZOMETA [Suspect]
     Dosage: 4 MG
     Dates: start: 20090506
  2. UVEDOSE [Suspect]
     Dosage: 200000 IU, QMO
     Dates: start: 20090505
  3. SKENAN [Suspect]
     Indication: MULTIPLE FRACTURES
     Dosage: 30 MG, BID
  4. INNOHEP [Concomitant]
     Indication: HYPERCOAGULATION
     Dosage: 0.7 DF, QD
  5. INNOHEP [Concomitant]
     Indication: PROPHYLAXIS
  6. ADANCOR [Concomitant]
     Indication: PROPHYLAXIS
     Dosage: 10 MG, BID
  7. NOVATREX [Concomitant]
     Dosage: 7.5 MG, QW
     Route: 048
  8. SPECIAFOLDINE [Concomitant]
     Dosage: 2 DF, QW
     Route: 048
  9. FORLAX [Concomitant]
     Dosage: 2 DF, QD
     Route: 048
  10. OXALIPLATIN [Concomitant]
  11. FLUOROURACIL [Concomitant]
  12. CETUXIMAB [Concomitant]

REACTIONS (3)
  - DEEP VEIN THROMBOSIS [None]
  - PULMONARY EMBOLISM [None]
  - SUDDEN DEATH [None]
